FAERS Safety Report 11951327 (Version 1)
Quarter: 2016Q1

REPORT INFORMATION
  Report Type: Spontaneous
  Country: US (occurrence: None)
  Receive Date: 20160122
  Receipt Date: 20160122
  Transmission Date: 20160526
  Serious: Yes (Life-Threatening, Hospitalization)
  Sender: FDA-Public Use
  Company Number: None

PATIENT
  Age: 43 Year
  Sex: Female
  Weight: 109 kg

DRUGS (12)
  1. IVABRADINE AMGEN [Suspect]
     Active Substance: IVABRADINE
     Indication: TACHYCARDIA
     Route: 048
     Dates: start: 20151130, end: 20151204
  2. DOBUTAMINE [Concomitant]
     Active Substance: DOBUTAMINE\DOBUTAMINE HYDROCHLORIDE
  3. INSULIN LISPRO [Concomitant]
     Active Substance: INSULIN LISPRO
  4. HEPARIN [Concomitant]
     Active Substance: HEPARIN SODIUM
  5. DUONEB NEBULIZER SOLUTION [Concomitant]
  6. HYDRALYZINE [Concomitant]
  7. AMLODIPINE [Concomitant]
     Active Substance: AMLODIPINE BESYLATE
  8. FLUTICASONE NASAL SPRAY [Concomitant]
     Active Substance: FLUTICASONE\FLUTICASONE PROPIONATE
  9. ONDANSETRON [Concomitant]
     Active Substance: ONDANSETRON
  10. FERROUS SULFATE [Concomitant]
     Active Substance: FERROUS SULFATE\FERROUS SULFATE, DRIED
  11. FUROSEMIDE. [Concomitant]
     Active Substance: FUROSEMIDE
  12. CEFTRIAXONE. [Concomitant]
     Active Substance: CEFTRIAXONE

REACTIONS (5)
  - Seizure [None]
  - Cardiac arrest [None]
  - Drug interaction [None]
  - Bradycardia [None]
  - Respiratory arrest [None]

NARRATIVE: CASE EVENT DATE: 20151204
